FAERS Safety Report 19543930 (Version 1)
Quarter: 2021Q3

REPORT INFORMATION
  Report Type: Spontaneous
  Country: IT (occurrence: IT)
  Receive Date: 20210713
  Receipt Date: 20210713
  Transmission Date: 20211014
  Serious: Yes (Other)
  Sender: FDA-Public Use
  Company Number: IT-AMGEN-ITASP2021104630

PATIENT
  Age: 73 Year
  Sex: Male

DRUGS (8)
  1. CYCLOSPORINE. [Concomitant]
     Active Substance: CYCLOSPORINE
  2. PREDNISOLONE. [Concomitant]
     Active Substance: PREDNISOLONE
  3. GUSELKUMAB [Concomitant]
     Active Substance: GUSELKUMAB
  4. METHOTREXATE. [Concomitant]
     Active Substance: METHOTREXATE
  5. ACITRETIN. [Concomitant]
     Active Substance: ACITRETIN
  6. APREMILAST [Suspect]
     Active Substance: APREMILAST
     Indication: PSORIASIS
     Dosage: UNK
     Route: 065
  7. IXEKIZUMAB [Concomitant]
     Active Substance: IXEKIZUMAB
     Dosage: UNK
  8. ADALIMUMAB [Suspect]
     Active Substance: ADALIMUMAB
     Indication: PSORIASIS
     Route: 065

REACTIONS (4)
  - Therapeutic product effect incomplete [Unknown]
  - Staphylococcal sepsis [Unknown]
  - Castleman^s disease [Recovering/Resolving]
  - Mantle cell lymphoma [Unknown]
